FAERS Safety Report 24693208 (Version 6)
Quarter: 2025Q3

REPORT INFORMATION
  Report Type: Report from Study
  Country: JP (occurrence: JP)
  Receive Date: 20241203
  Receipt Date: 20250930
  Transmission Date: 20251021
  Serious: Yes (Other)
  Sender: ALEXION PHARMACEUTICALS
  Company Number: JP-ASTRAZENECA-240136362_032420_P_1

PATIENT
  Age: 74 Year
  Sex: Male
  Weight: 83 kg

DRUGS (2)
  1. TEZEPELUMAB [Suspect]
     Active Substance: TEZEPELUMAB
     Indication: Asthma
  2. ADRENAL [Concomitant]
     Active Substance: EPINEPHRINE

REACTIONS (14)
  - Presyncope [Recovered/Resolved]
  - Loss of consciousness [Recovered/Resolved]
  - Infective exacerbation of asthma [Unknown]
  - Pneumonia [Recovering/Resolving]
  - Blood pressure systolic increased [Recovered/Resolved]
  - Dizziness postural [Recovered/Resolved]
  - Cold sweat [Recovered/Resolved]
  - Dizziness [Recovered/Resolved]
  - Asthma [Recovering/Resolving]
  - Palpitations [Recovered/Resolved]
  - Herpangina [Recovering/Resolving]
  - Adenovirus infection [Recovering/Resolving]
  - Bronchitis [Recovering/Resolving]
  - Viral infection [Unknown]

NARRATIVE: CASE EVENT DATE: 20240216
